FAERS Safety Report 4665620-8 (Version None)
Quarter: 2005Q2

REPORT INFORMATION
  Report Type: 
  Country: None (occurrence: None)
  Receive Date: 20050517
  Receipt Date: 20050502
  Transmission Date: 20051028
  Serious: Yes (Death, Life-Threatening, Hospitalization, Other)
  Sender: FDA-Public Use
  Company Number: 2005-05-0283

PATIENT
  Age: 57 Year
  Sex: Male
  Weight: 87.5442 kg

DRUGS (10)
  1. PEG-INTRON [Suspect]
     Indication: HEPATITIS C
     Dosage: 3.0 UG/KG/WK SUBCUTANEOU
     Route: 058
     Dates: start: 20050331, end: 20050428
  2. REBETOL [Suspect]
     Indication: HEPATITIS C
     Dosage: 1200 MG QD ORAL
     Route: 048
     Dates: start: 20050331, end: 20050430
  3. PHENERGAN SUPPOSITORY [Concomitant]
  4. SYNTHROID [Concomitant]
  5. OXYCONTIN [Concomitant]
  6. DIOVAN [Concomitant]
  7. SOMA [Concomitant]
  8. LORTAB [Concomitant]
  9. TYLENOL (CAPLET) [Concomitant]
  10. ANTIBIOTIC [Concomitant]

REACTIONS (26)
  - ACTIVATED PARTIAL THROMBOPLASTIN TIME PROLONGED [None]
  - BLOOD CALCIUM DECREASED [None]
  - BLOOD DISORDER [None]
  - BLOOD POTASSIUM INCREASED [None]
  - CARDIAC DISORDER [None]
  - DRUG SCREEN POSITIVE [None]
  - HEPATITIS C [None]
  - HYPOTENSION [None]
  - LOSS OF CONSCIOUSNESS [None]
  - LUNG NEOPLASM [None]
  - METABOLIC ACIDOSIS [None]
  - METASTATIC NEOPLASM [None]
  - MYOCARDIAL ISCHAEMIA [None]
  - OPPORTUNISTIC INFECTION [None]
  - PCO2 INCREASED [None]
  - PLATELET COUNT DECREASED [None]
  - PO2 INCREASED [None]
  - PYREXIA [None]
  - RENAL FAILURE [None]
  - RENAL FAILURE ACUTE [None]
  - RESPIRATORY FAILURE [None]
  - SEPSIS [None]
  - SEPTIC EMBOLUS [None]
  - SPEECH DISORDER [None]
  - TACHYCARDIA [None]
  - UNRESPONSIVE TO VERBAL STIMULI [None]
